FAERS Safety Report 24669215 (Version 1)
Quarter: 2024Q4

REPORT INFORMATION
  Report Type: Spontaneous
  Country: BE (occurrence: BE)
  Receive Date: 20241127
  Receipt Date: 20241127
  Transmission Date: 20250114
  Serious: Yes (Other)
  Sender: CELLTRION
  Company Number: BE-SANDOZ-SDZ2024BE049757

PATIENT

DRUGS (2)
  1. INFLIXIMAB [Suspect]
     Active Substance: INFLIXIMAB
     Indication: Spondylitis
     Dosage: 5 MG/KG/8 WK
     Route: 065
  2. METHOTREXATE [Suspect]
     Active Substance: METHOTREXATE
     Indication: Product used for unknown indication
     Dosage: 15 MG/WK
     Route: 065

REACTIONS (2)
  - Pyoderma gangrenosum [Not Recovered/Not Resolved]
  - Organising pneumonia [Not Recovered/Not Resolved]
